FAERS Safety Report 10167590 (Version 1)
Quarter: 2014Q2

REPORT INFORMATION
  Report Type: Spontaneous
  Country: US (occurrence: US)
  Receive Date: 20140512
  Receipt Date: 20140512
  Transmission Date: 20141212
  Serious: No
  Sender: FDA-Public Use
  Company Number: US-PFIZER INC-2014125247

PATIENT
  Age: 85 Year
  Sex: Female
  Weight: 57.6 kg

DRUGS (3)
  1. ADVIL [Suspect]
     Indication: MUSCULOSKELETAL DISORDER
     Dosage: UNK, AS NEEDED
  2. ADVIL [Suspect]
     Indication: ARTHRITIS
  3. FOSAMAX [Concomitant]
     Indication: OSTEOPOROSIS
     Dosage: 70 MG, WEEKLY

REACTIONS (2)
  - Burning sensation [Recovered/Resolved]
  - Oropharyngeal pain [Not Recovered/Not Resolved]
